FAERS Safety Report 23187895 (Version 1)
Quarter: 2023Q4

REPORT INFORMATION
  Report Type: Spontaneous
  Country: US (occurrence: None)
  Receive Date: 20231114
  Receipt Date: 20231114
  Transmission Date: 20240109
  Serious: Yes (Other)
  Sender: FDA-Public Use
  Company Number: None

PATIENT
  Age: 71 Year
  Sex: Female
  Weight: 59 kg

DRUGS (1)
  1. CARVYKTI [Suspect]
     Active Substance: CILTACABTAGENE AUTOLEUCEL
     Indication: Plasma cell myeloma refractory
     Dosage: FREQUENCY : AS DIRECTED;?
     Route: 042
     Dates: start: 20230123, end: 20230123

REACTIONS (9)
  - Myalgia [None]
  - Arthralgia [None]
  - Acute kidney injury [None]
  - Headache [None]
  - Constipation [None]
  - Diarrhoea [None]
  - Gastroenteritis Escherichia coli [None]
  - Immune-mediated enterocolitis [None]
  - Enteropathy-associated T-cell lymphoma [None]

NARRATIVE: CASE EVENT DATE: 20231026
